FAERS Safety Report 13341050 (Version 3)
Quarter: 2017Q1

REPORT INFORMATION
  Report Type: Report from Study
  Country: CN (occurrence: CN)
  Receive Date: 20170316
  Receipt Date: 20170329
  Transmission Date: 20170428
  Serious: Yes (Death)
  Sender: FDA-Public Use
  Company Number: CN-ROCHE-1906844

PATIENT
  Age: 78 Year
  Sex: Female

DRUGS (1)
  1. ALTEPLASE [Suspect]
     Active Substance: ALTEPLASE
     Indication: ISCHAEMIC STROKE
     Dosage: UNIT DOSE: 15
     Route: 013

REACTIONS (2)
  - Pneumonia bacterial [Fatal]
  - Haemorrhagic transformation stroke [Fatal]
